FAERS Safety Report 8137305-7 (Version None)
Quarter: 2012Q1

REPORT INFORMATION
  Report Type: 
  Country: None (occurrence: None)
  Receive Date: 20120215
  Receipt Date: 20120214
  Transmission Date: 20120608
  Serious: Yes (Death, Other)
  Sender: FDA-Public Use
  Company Number: JP-BRACCO-005644

PATIENT
  Age: 85 Year
  Sex: Female

DRUGS (2)
  1. IOPAMIDOL [Suspect]
     Indication: AORTIC DISORDER
     Route: 042
     Dates: start: 20120211, end: 20120211
  2. IOPAMIDOL [Suspect]
     Indication: COMPUTERISED TOMOGRAM THORAX
     Route: 042
     Dates: start: 20120211, end: 20120211

REACTIONS (1)
  - ACUTE MYOCARDIAL INFARCTION [None]
